FAERS Safety Report 9908228 (Version 1)
Quarter: 2014Q1

REPORT INFORMATION
  Report Type: Spontaneous
  Country: US (occurrence: None)
  Receive Date: 20140212
  Receipt Date: 20140212
  Transmission Date: 20141002
  Serious: Yes (Life-Threatening)
  Sender: FDA-Public Use
  Company Number: None

PATIENT
  Age: 53 Year
  Sex: Male
  Weight: 139 kg

DRUGS (6)
  1. VICTOZA [Suspect]
  2. COLESEVELAM [Concomitant]
  3. GABAPENTIN [Concomitant]
  4. LIRAGLUTIDE [Concomitant]
  5. PANTOPRAZOLE [Concomitant]
  6. SERTRALINE [Concomitant]

REACTIONS (1)
  - Pancreatitis acute [None]
